FAERS Safety Report 24445642 (Version 1)
Quarter: 2024Q4

REPORT INFORMATION
  Report Type: Other
  Country: AU (occurrence: AU)
  Receive Date: 20241016
  Receipt Date: 20241016
  Transmission Date: 20250114
  Serious: No
  Sender: TOLMAR
  Company Number: AU-TOLMAR, INC.-24AU053122

PATIENT
  Sex: Male

DRUGS (3)
  1. ELIGARD [Suspect]
     Active Substance: LEUPROLIDE ACETATE
     Indication: Prostate cancer
     Dosage: 22.5 MILLIGRAM, Q 3 MONTH
  2. ELIGARD [Suspect]
     Active Substance: LEUPROLIDE ACETATE
     Indication: Prostate cancer
     Dosage: UNK
  3. RADIATION THERAPY [Concomitant]
     Active Substance: RADIATION THERAPY
     Indication: Product used for unknown indication
     Dosage: UNK

REACTIONS (2)
  - Bladder disorder [Unknown]
  - Gastrointestinal disorder [Unknown]
